FAERS Safety Report 4983122-6 (Version None)
Quarter: 2006Q2

REPORT INFORMATION
  Report Type: 
  Country: None (occurrence: None)
  Receive Date: 20060420
  Receipt Date: 20060412
  Transmission Date: 20061013
  Serious: Yes (Other)
  Sender: FDA-Public Use
  Company Number: 2006050209

PATIENT
  Sex: Female
  Weight: 103.8737 kg

DRUGS (8)
  1. NEURONTIN [Suspect]
     Indication: NEUROPATHY
  2. LYRICA [Suspect]
     Indication: NEUROPATHY
     Dosage: 150 MG (50 MG, 3 IN 1 D)
     Dates: start: 20060412
  3. ELAVIL [Suspect]
     Indication: NEUROPATHY
  4. BEN GAY (MENTHOL, METHYL SALICYLATE) [Concomitant]
  5. HUMALOG [Concomitant]
  6. AVANDIA [Concomitant]
  7. DARVOCET [Concomitant]
  8. PREVACID [Concomitant]

REACTIONS (4)
  - CONDITION AGGRAVATED [None]
  - CORONARY ARTERY OCCLUSION [None]
  - DRUG INEFFECTIVE [None]
  - NEUROPATHY [None]
